FAERS Safety Report 20795705 (Version 1)
Quarter: 2022Q2

REPORT INFORMATION
  Report Type: Spontaneous
  Country: DE (occurrence: DE)
  Receive Date: 20220506
  Receipt Date: 20220506
  Transmission Date: 20220721
  Serious: Yes (Other)
  Sender: FDA-Public Use
  Company Number: DE-DCGMA-21192919

PATIENT
  Age: 6 Year
  Sex: Female
  Weight: 30 kg

DRUGS (1)
  1. AMOXICILLIN [Suspect]
     Active Substance: AMOXICILLIN
     Dosage: AMOXICILLIN SAFT
     Dates: start: 20210802, end: 20210808

REACTIONS (3)
  - Headache [Unknown]
  - Drug eruption [Unknown]
  - Urticaria [Unknown]

NARRATIVE: CASE EVENT DATE: 20210808
